FAERS Safety Report 18894388 (Version 3)
Quarter: 2021Q1

REPORT INFORMATION
  Report Type: Spontaneous
  Country: US (occurrence: US)
  Receive Date: 20210215
  Receipt Date: 20210316
  Transmission Date: 20210420
  Serious: No
  Sender: FDA-Public Use
  Company Number: US-GLAXOSMITHKLINE-US2021AMR039949

PATIENT
  Sex: Female

DRUGS (2)
  1. ZEJULA [Suspect]
     Active Substance: NIRAPARIB
     Indication: OVARIAN CANCER
     Dosage: UNK
  2. ZEJULA [Suspect]
     Active Substance: NIRAPARIB
     Dosage: 100 MG, QD

REACTIONS (8)
  - Flatulence [Unknown]
  - Constipation [Not Recovered/Not Resolved]
  - Groin pain [Unknown]
  - Abdominal distension [Unknown]
  - Peripheral swelling [Unknown]
  - Pain in extremity [Unknown]
  - Arthralgia [Unknown]
  - Joint swelling [Unknown]
